FAERS Safety Report 15313700 (Version 2)
Quarter: 2018Q3

REPORT INFORMATION
  Report Type: Report from Study
  Country: CA (occurrence: CA)
  Receive Date: 20180824
  Receipt Date: 20180909
  Transmission Date: 20181010
  Serious: Yes (Other)
  Sender: FDA-Public Use
  Company Number: CA-ROCHE-1155666

PATIENT
  Age: 58 Year
  Sex: Female
  Weight: 77.1 kg

DRUGS (26)
  1. SALBUTAMOL [Concomitant]
     Active Substance: ALBUTEROL
  2. RITUXAN [Suspect]
     Active Substance: RITUXIMAB
     Indication: RHEUMATOID ARTHRITIS
     Route: 042
     Dates: start: 20120614
  3. RAMIPRIL. [Concomitant]
     Active Substance: RAMIPRIL
  4. GEMFIBROZIL. [Concomitant]
     Active Substance: GEMFIBROZIL
  5. FOLIC ACID. [Concomitant]
     Active Substance: FOLIC ACID
  6. NEXIUM [Concomitant]
     Active Substance: ESOMEPRAZOLE MAGNESIUM
  7. ACETAMINOPHEN. [Concomitant]
     Active Substance: ACETAMINOPHEN
     Indication: PREMEDICATION
     Route: 048
     Dates: start: 20120614, end: 20120614
  8. LEFLUNOMIDE. [Concomitant]
     Active Substance: LEFLUNOMIDE
  9. METHOTREXATE. [Concomitant]
     Active Substance: METHOTREXATE
  10. HYDROXYZINE [Concomitant]
     Active Substance: HYDROXYZINE HYDROCHLORIDE
  11. HYDROMORPHONE [Concomitant]
     Active Substance: HYDROMORPHONE
  12. METFORMIN [Concomitant]
     Active Substance: METFORMIN HYDROCHLORIDE
  13. INSULIN [Concomitant]
     Active Substance: INSULIN NOS
  14. AVAPRO [Concomitant]
     Active Substance: IRBESARTAN
  15. MEDROXY [Concomitant]
     Active Substance: MEDROXYPROGESTERONE ACETATE
  16. HYDROXYCHLOROQUINE [Concomitant]
     Active Substance: HYDROXYCHLOROQUINE
  17. ACETAMINOPHEN. [Concomitant]
     Active Substance: ACETAMINOPHEN
     Route: 048
     Dates: start: 20120627
  18. DIPHENHYDRAMINE HCL [Concomitant]
     Active Substance: DIPHENHYDRAMINE HYDROCHLORIDE
     Indication: PREMEDICATION
     Route: 048
     Dates: start: 20120614
  19. EFFEXOR [Concomitant]
     Active Substance: VENLAFAXINE HYDROCHLORIDE
  20. METHYLPREDNISOLONE. [Concomitant]
     Active Substance: METHYLPREDNISOLONE
     Route: 042
     Dates: start: 20121214, end: 20121214
  21. ACETYLSALICYLIC ACID [Concomitant]
     Active Substance: ASPIRIN
  22. LUCENTIS [Concomitant]
     Active Substance: RANIBIZUMAB
     Route: 065
  23. RITUXAN [Suspect]
     Active Substance: RITUXIMAB
     Route: 042
     Dates: start: 20150428
  24. METHYLPREDNISOLONE. [Concomitant]
     Active Substance: METHYLPREDNISOLONE
     Indication: PREMEDICATION
     Route: 042
     Dates: start: 20120614
  25. ASPIRIN. [Concomitant]
     Active Substance: ASPIRIN
  26. LIPITOR [Concomitant]
     Active Substance: ATORVASTATIN CALCIUM

REACTIONS (17)
  - Body temperature decreased [Unknown]
  - Throat irritation [Recovered/Resolved]
  - Localised infection [Unknown]
  - Loose tooth [Recovered/Resolved]
  - Laceration [Recovering/Resolving]
  - Oxygen saturation decreased [Unknown]
  - Blood pressure diastolic increased [Unknown]
  - Herpes simplex [Unknown]
  - Oxygen saturation decreased [Unknown]
  - Blood pressure systolic increased [Unknown]
  - Pain in extremity [Unknown]
  - Rheumatoid arthritis [Not Recovered/Not Resolved]
  - Periodontitis [Not Recovered/Not Resolved]
  - Herpes zoster [Recovered/Resolved]
  - Neuralgia [Unknown]
  - Fatigue [Not Recovered/Not Resolved]
  - Back pain [Unknown]

NARRATIVE: CASE EVENT DATE: 20121029
